FAERS Safety Report 6192048-4 (Version None)
Quarter: 2009Q2

REPORT INFORMATION
  Report Type: 
  Country: None (occurrence: None)
  Receive Date: 20090515
  Receipt Date: 20090512
  Transmission Date: 20091009
  Serious: Yes (Death, Hospitalization)
  Sender: FDA-Public Use
  Company Number: TR-ROXANE LABORATORIES, INC.-2009-RO-00485RO

PATIENT
  Age: 76 Year
  Sex: Female

DRUGS (12)
  1. DIGOXIN [Suspect]
  2. FOSINOPRIL SODIUM [Suspect]
  3. PAPAVERINE HCL [Suspect]
     Indication: INTESTINAL ISCHAEMIA
  4. PAPAVERINE HCL [Suspect]
     Indication: HYPOPERFUSION
  5. FLUID REPLACEMENT [Suspect]
     Indication: SEPSIS
     Route: 042
  6. FLUID REPLACEMENT [Suspect]
     Indication: SHOCK
  7. FLUID REPLACEMENT [Suspect]
     Indication: PYREXIA
  8. FLUID REPLACEMENT [Suspect]
     Indication: LEUKOCYTOSIS
  9. ANTIBIOTICS [Suspect]
     Indication: SEPSIS
     Route: 042
  10. ANTIBIOTICS [Suspect]
     Indication: SHOCK
  11. ANTIBIOTICS [Suspect]
     Indication: PYREXIA
  12. ANTIBIOTICS [Suspect]
     Indication: LEUKOCYTOSIS

REACTIONS (8)
  - HYPOTENSION [None]
  - INTESTINAL ISCHAEMIA [None]
  - LEUKOCYTOSIS [None]
  - OVERDOSE [None]
  - PYREXIA [None]
  - SEPSIS [None]
  - SHOCK [None]
  - THERAPEUTIC AGENT TOXICITY [None]
